FAERS Safety Report 23178615 (Version 1)
Quarter: 2023Q4

REPORT INFORMATION
  Report Type: Spontaneous
  Country: US (occurrence: None)
  Receive Date: 20231111
  Receipt Date: 20231111
  Transmission Date: 20240110
  Serious: No
  Sender: FDA-Public Use
  Company Number: None

PATIENT
  Age: 67 Year
  Sex: Male
  Weight: 74.84 kg

DRUGS (15)
  1. SYMBICORT [Suspect]
     Active Substance: BUDESONIDE\FORMOTEROL FUMARATE DIHYDRATE
  2. red rescue inhaler [Concomitant]
  3. ellipta [Concomitant]
  4. METFORMIN [Concomitant]
     Active Substance: METFORMIN HYDROCHLORIDE
  5. WELLBUTRIN [Concomitant]
     Active Substance: BUPROPION HYDROCHLORIDE
  6. CELEXA [Concomitant]
     Active Substance: CITALOPRAM HYDROBROMIDE
  7. OMEPRAZOLE [Concomitant]
     Active Substance: OMEPRAZOLE
  8. JARDIANCE [Concomitant]
     Active Substance: EMPAGLIFLOZIN
  9. traz [Concomitant]
  10. VITAMIN D3 [Concomitant]
     Active Substance: CHOLECALCIFEROL
  11. LORATADINE [Concomitant]
     Active Substance: LORATADINE
  12. MELATONIN [Concomitant]
     Active Substance: MELATONIN
  13. Musinex [Concomitant]
  14. FLUTICASONE [Concomitant]
     Active Substance: FLUTICASONE
  15. PROBIOTICS NOS [Concomitant]
     Active Substance: PROBIOTICS NOS

REACTIONS (2)
  - Product packaging confusion [None]
  - Wrong product administered [None]

NARRATIVE: CASE EVENT DATE: 20231108
